FAERS Safety Report 17976781 (Version 1)
Quarter: 2020Q3

REPORT INFORMATION
  Report Type: Spontaneous
  Country: GB (occurrence: GB)
  Receive Date: 20200703
  Receipt Date: 20200703
  Transmission Date: 20201103
  Serious: Yes (Other)
  Sender: FDA-Public Use
  Company Number: GB-STRIDES ARCOLAB LIMITED-2020SP007629

PATIENT
  Sex: Female

DRUGS (3)
  1. NEVIRAPINE. [Suspect]
     Active Substance: NEVIRAPINE
     Indication: HIV INFECTION
     Dosage: SINGLE COURSE WITH TOTAL DAILY DOSAGE OF 400 MG PER DAY
     Route: 065
     Dates: start: 20000122
  2. NORVIR [Suspect]
     Active Substance: RITONAVIR
     Indication: HIV INFECTION
     Dosage: UNK, SINGLE COURSE WITH TOTAL DAILY DOSAGE OF 500 MG PER DAY
     Route: 065
     Dates: start: 20000122
  3. DIDANOSINE. [Suspect]
     Active Substance: DIDANOSINE
     Indication: HIV INFECTION
     Dosage: UNK, SINGLE COURSE WITH TOTAL DAILY DOSAGE OF 400 MG PER DAY
     Route: 065
     Dates: start: 20040122

REACTIONS (2)
  - Maternal exposure during pregnancy [Unknown]
  - Stillbirth [Unknown]
